FAERS Safety Report 6914129-7 (Version None)
Quarter: 2010Q3

REPORT INFORMATION
  Report Type: 
  Country: None (occurrence: None)
  Receive Date: 20100809
  Receipt Date: 20100728
  Transmission Date: 20110219
  Serious: Yes (Hospitalization)
  Sender: FDA-Public Use
  Company Number: JP-PFIZER INC-2010094386

PATIENT
  Age: 75 Year
  Sex: Male
  Weight: 60 kg

DRUGS (13)
  1. DOXAZOSIN MESYLATE [Suspect]
     Indication: HYPERTENSION
     Dosage: UNK
     Route: 048
     Dates: start: 20070801, end: 20080916
  2. TANATRIL ^TANABE^ [Suspect]
     Indication: HYPERTENSION
     Dosage: UNK
     Route: 048
     Dates: start: 20070801, end: 20080916
  3. COMELIAN [Concomitant]
     Dosage: UNK
     Dates: end: 20080916
  4. EPADEL [Concomitant]
     Dosage: UNK
     Dates: end: 20080916
  5. KREMEZIN [Concomitant]
     Dosage: UNK
     Dates: end: 20080916
  6. METHYCOBAL [Concomitant]
     Dosage: UNK
     Dates: end: 20080916
  7. KAYEXALATE [Concomitant]
     Dosage: UNK
     Dates: end: 20080916
  8. ASPIRIN [Concomitant]
     Dosage: UNK
  9. PANALDINE [Concomitant]
     Dosage: UNK
  10. SIGMART [Concomitant]
     Dosage: UNK
  11. ITOROL [Concomitant]
     Dosage: UNK
  12. MICARDIS [Concomitant]
     Dosage: UNK
  13. OMEPRAL [Concomitant]
     Dosage: UNK
     Dates: end: 20080816

REACTIONS (1)
  - PEMPHIGUS [None]
